FAERS Safety Report 7330668-1 (Version None)
Quarter: 2011Q1

REPORT INFORMATION
  Report Type: 
  Country: None (occurrence: None)
  Receive Date: 20110304
  Receipt Date: 20110301
  Transmission Date: 20110831
  Serious: Yes (Other)
  Sender: FDA-Public Use
  Company Number: US-ASTRAZENECA-2011SE11190

PATIENT
  Age: 16497 Day
  Sex: Female
  Weight: 94.8 kg

DRUGS (19)
  1. SEROQUEL [Suspect]
     Indication: INSOMNIA
     Route: 048
     Dates: start: 20020601
  2. AMBIEN [Concomitant]
     Dates: start: 20080101
  3. EFFEXOR [Concomitant]
     Indication: ANXIETY
     Dates: start: 20020601
  4. SYNTHROID [Concomitant]
     Route: 048
     Dates: start: 20081120
  5. GEMFIBROSIL [Concomitant]
     Dates: start: 20081120
  6. DETROL LA [Concomitant]
     Dates: start: 20081120
  7. CLONAZEPAM [Concomitant]
     Dates: start: 20081120
  8. PAXIL [Concomitant]
     Indication: WEIGHT INCREASED
     Dates: start: 20020601
  9. SYNTHROID [Concomitant]
     Route: 048
     Dates: start: 20070919
  10. SEROQUEL [Suspect]
     Route: 048
     Dates: start: 20020902
  11. EFFEXOR [Concomitant]
     Indication: DIZZINESS
     Dates: start: 20020601
  12. ZOLOFT [Concomitant]
     Indication: HALLUCINATION
     Dates: start: 20030101
  13. LISINOPRIL [Concomitant]
     Dates: start: 20081120
  14. PROVIGIL [Concomitant]
     Dates: start: 20081120
  15. CELEXA [Concomitant]
     Dates: start: 20081120
  16. SEROQUEL [Suspect]
     Route: 048
     Dates: start: 20081120
  17. AMBIEN [Concomitant]
     Indication: DEPRESSION
     Dates: start: 20020101
  18. LOPID [Concomitant]
     Route: 048
     Dates: start: 20070919
  19. SIMVASTATIN [Concomitant]
     Route: 048
     Dates: start: 20070919

REACTIONS (11)
  - FALLOPIAN TUBE DISORDER [None]
  - TYPE 2 DIABETES MELLITUS [None]
  - HYPERLIPIDAEMIA [None]
  - HYPERTENSION [None]
  - HYPOTHYROIDISM [None]
  - DIABETIC NEUROPATHY [None]
  - THYROID DISORDER [None]
  - WEIGHT INCREASED [None]
  - GALLBLADDER DISORDER [None]
  - FATIGUE [None]
  - SINUS HEADACHE [None]
